FAERS Safety Report 21164937 (Version 1)
Quarter: 2022Q3

REPORT INFORMATION
  Report Type: Spontaneous
  Country: US (occurrence: None)
  Receive Date: 20220803
  Receipt Date: 20220803
  Transmission Date: 20221027
  Serious: Yes (Life-Threatening, Hospitalization, Other)
  Sender: FDA-Public Use
  Company Number: US-MLMSERVICE-20220714-3672663-1

PATIENT
  Age: 61 Year
  Sex: Female

DRUGS (1)
  1. PREDNISONE [Suspect]
     Active Substance: PREDNISONE
     Indication: Product used for unknown indication
     Dosage: UNKNOWN
     Route: 065

REACTIONS (8)
  - Respiratory failure [Unknown]
  - Aneurysm ruptured [Unknown]
  - Haemorrhage [Unknown]
  - Cerebral nocardiosis [Unknown]
  - Pulmonary nocardiosis [Unknown]
  - Bronchopulmonary aspergillosis [Unknown]
  - Central nervous system fungal infection [Unknown]
  - Oesophagitis [Unknown]
